FAERS Safety Report 24318124 (Version 1)
Quarter: 2024Q3

REPORT INFORMATION
  Report Type: Spontaneous
  Country: US (occurrence: None)
  Receive Date: 20240913
  Receipt Date: 20240913
  Transmission Date: 20241017
  Serious: Yes (Life-Threatening)
  Sender: ASTRAZENECA
  Company Number: 2024A205140

PATIENT
  Sex: Male

DRUGS (1)
  1. LYNPARZA [Suspect]
     Active Substance: OLAPARIB
     Route: 048
     Dates: start: 20240806

REACTIONS (10)
  - Suicidal ideation [Unknown]
  - Emotional distress [Unknown]
  - Thinking abnormal [Unknown]
  - Nausea [Unknown]
  - Abdominal pain [Unknown]
  - Feeding disorder [Unknown]
  - Weight decreased [Unknown]
  - Asthenia [Unknown]
  - Constipation [Unknown]
  - Psychiatric symptom [Unknown]
